FAERS Safety Report 15589029 (Version 1)
Quarter: 2018Q4

REPORT INFORMATION
  Report Type: Spontaneous
  Country: US (occurrence: US)
  Receive Date: 20181106
  Receipt Date: 20181106
  Transmission Date: 20190205
  Serious: Yes (Other)
  Sender: FDA-Public Use
  Company Number: US-PFIZER INC-2018447242

PATIENT
  Age: 89 Year
  Sex: Male

DRUGS (1)
  1. CELEBREX [Suspect]
     Active Substance: CELECOXIB
     Dosage: 200 MG, DAILY

REACTIONS (2)
  - Shock haemorrhagic [Unknown]
  - Upper gastrointestinal haemorrhage [Unknown]
